FAERS Safety Report 25878831 (Version 1)
Quarter: 2025Q4

REPORT INFORMATION
  Report Type: Spontaneous
  Country: GB (occurrence: GB)
  Receive Date: 20251003
  Receipt Date: 20251003
  Transmission Date: 20260117
  Serious: Yes (Disabling)
  Sender: TEVA
  Company Number: GB-TEVA-VS-3376451

PATIENT
  Sex: Female

DRUGS (1)
  1. CROMOLYN SODIUM [Suspect]
     Active Substance: CROMOLYN SODIUM
     Indication: Product used for unknown indication
     Dosage: FORM STRENGTH: 20/2MG/ML, INHALATION NEBULES SOLUTION; ROA: RESPIRATORY (INHALATION)
     Route: 065

REACTIONS (4)
  - Disability [Unknown]
  - Hypersensitivity [Unknown]
  - Product availability issue [Unknown]
  - Product packaging issue [Unknown]

NARRATIVE: CASE EVENT DATE: 20250401
